FAERS Safety Report 4561130-7 (Version None)
Quarter: 2005Q1

REPORT INFORMATION
  Report Type: 
  Country: None (occurrence: None)
  Receive Date: 20050121
  Receipt Date: 20050106
  Transmission Date: 20050727
  Serious: Yes (Hospitalization)
  Sender: FDA-Public Use
  Company Number: US013912

PATIENT
  Age: 52 Year
  Sex: Female

DRUGS (12)
  1. PROVIGIL [Suspect]
     Indication: DEPRESSION
     Dosage: 100 MG QD ORAL
     Route: 048
     Dates: start: 20020301
  2. PROVIGIL [Suspect]
     Indication: FATIGUE
     Dosage: 100 MG QD ORAL
     Route: 048
     Dates: start: 20020301
  3. PROVIGIL [Suspect]
     Indication: DEPRESSION
     Dosage: 200 MG QD ORAL
     Route: 048
     Dates: start: 20040901, end: 20040901
  4. PROVIGIL [Suspect]
     Indication: FATIGUE
     Dosage: 200 MG QD ORAL
     Route: 048
     Dates: start: 20040901, end: 20040901
  5. PROVIGIL [Suspect]
     Indication: DEPRESSION
     Dosage: 50 MG ONCE ORAL
     Route: 048
     Dates: start: 20040914, end: 20040914
  6. PROVIGIL [Suspect]
     Indication: FATIGUE
     Dosage: 50 MG ONCE ORAL
     Route: 048
     Dates: start: 20040914, end: 20040914
  7. KLONOPIN [Suspect]
     Dosage: 2.25 MG QD ORAL
     Route: 048
  8. NEURONTIN [Suspect]
     Dosage: 1200 MG QD ORAL
     Route: 048
  9. ACIPHEX [Suspect]
     Indication: GASTROOESOPHAGEAL REFLUX DISEASE
     Dosage: 60 MG QD ORAL
     Route: 048
  10. HYDROCHLOROTHIAZIDE [Suspect]
     Indication: POLYURIA
     Dosage: 100 MG QD ORAL
     Route: 048
  11. DORYX [Suspect]
     Dosage: 100 MG QD ORAL
     Route: 048
  12. LEXAPRO [Suspect]
     Indication: DEPRESSION
     Dosage: 10 MG QD ORAL
     Route: 048

REACTIONS (14)
  - ATELECTASIS [None]
  - BALANCE DISORDER [None]
  - CONVULSION [None]
  - DISORIENTATION [None]
  - DIZZINESS [None]
  - HYPOTENSION [None]
  - INFLUENZA LIKE ILLNESS [None]
  - LUNG INFILTRATION [None]
  - MYALGIA [None]
  - PNEUMONIA [None]
  - PYURIA [None]
  - SEPTIC SHOCK [None]
  - URINARY TRACT INFECTION [None]
  - VOMITING [None]
